FAERS Safety Report 10831896 (Version 2)
Quarter: 2015Q1

REPORT INFORMATION
  Report Type: Report from Study
  Country: NL (occurrence: NL)
  Receive Date: 20150219
  Receipt Date: 20150323
  Transmission Date: 20150721
  Serious: Yes (Other)
  Sender: FDA-Public Use
  Company Number: NL-AMGEN-NLDSL2015014177

PATIENT
  Age: 59 Year
  Sex: Female

DRUGS (1)
  1. XGEVA [Suspect]
     Active Substance: DENOSUMAB
     Indication: PRODUCT USED FOR UNKNOWN INDICATION
     Dosage: 120 MG, Q4WK
     Route: 058
     Dates: start: 20130121

REACTIONS (5)
  - Pain in jaw [Recovering/Resolving]
  - Gingival pain [Unknown]
  - Exposed bone in jaw [Recovered/Resolved]
  - Breast cancer metastatic [Unknown]
  - Myalgia [Unknown]

NARRATIVE: CASE EVENT DATE: 20140203
